FAERS Safety Report 5703302-1 (Version None)
Quarter: 2008Q2

REPORT INFORMATION
  Report Type: 
  Country: None (occurrence: None)
  Receive Date: 20080411
  Receipt Date: 20080331
  Transmission Date: 20081010
  Serious: Yes (Other)
  Sender: FDA-Public Use
  Company Number: GB-PFIZER INC-2008022862

PATIENT
  Sex: Male
  Weight: 120 kg

DRUGS (1)
  1. CHAMPIX [Suspect]
     Route: 048
     Dates: start: 20080128, end: 20080212

REACTIONS (4)
  - ABDOMINAL DISTENSION [None]
  - CONSTIPATION [None]
  - DRUG INEFFECTIVE [None]
  - MALAISE [None]
